FAERS Safety Report 6501062-8 (Version None)
Quarter: 2009Q4

REPORT INFORMATION
  Report Type: 
  Country: None (occurrence: None)
  Receive Date: 20091216
  Receipt Date: 20090622
  Transmission Date: 20100525
  Serious: No
  Sender: FDA-Public Use
  Company Number: A0793008A

PATIENT
  Age: 60 Year
  Sex: Female

DRUGS (1)
  1. COMMIT [Suspect]

REACTIONS (4)
  - ABDOMINAL DISCOMFORT [None]
  - DRUG ADMINISTRATION ERROR [None]
  - HICCUPS [None]
  - NAUSEA [None]
